FAERS Safety Report 7159935-1 (Version None)
Quarter: 2010Q4

REPORT INFORMATION
  Report Type: 
  Country: None (occurrence: None)
  Receive Date: 20101214
  Receipt Date: 20101209
  Transmission Date: 20110411
  Serious: Yes (Life-Threatening, Hospitalization)
  Sender: FDA-Public Use
  Company Number: DE-AMGEN-DEUSP2010008252

PATIENT

DRUGS (1)
  1. VECTIBIX [Suspect]
     Indication: COLON CANCER
     Dosage: 420 MG, ONE TIME DOSE
     Route: 042
     Dates: start: 20101208, end: 20101209

REACTIONS (1)
  - ANAPHYLACTIC REACTION [None]
